FAERS Safety Report 19188295 (Version 3)
Quarter: 2021Q2

REPORT INFORMATION
  Report Type: Report from Study
  Country: IT (occurrence: IT)
  Receive Date: 20210428
  Receipt Date: 20210618
  Transmission Date: 20210717
  Serious: Yes (Hospitalization)
  Sender: FDA-Public Use
  Company Number: IT-ROCHE-2815030

PATIENT
  Age: 80 Year
  Sex: Female
  Weight: 64 kg

DRUGS (20)
  1. ATEZOLIZUMAB. [Suspect]
     Active Substance: ATEZOLIZUMAB
     Indication: TRIPLE NEGATIVE BREAST CANCER
     Dosage: DATE OF LAST DOSE OF 840 MG ATEZOLIZUMAB ADMINISTERED PRIOR AE: 25/MAR/2021?DOSE LAST STUDY DRUG ADM
     Route: 042
     Dates: start: 20201222
  2. FLECAINIDE [Concomitant]
     Active Substance: FLECAINIDE
  3. BRINTELLIX [Concomitant]
     Active Substance: VORTIOXETINE HYDROBROMIDE
  4. QUETIAPINE. [Concomitant]
     Active Substance: QUETIAPINE
  5. DUROGESIC [Concomitant]
     Active Substance: FENTANYL
     Dates: start: 20201222
  6. ONDANSETRON [Concomitant]
     Active Substance: ONDANSETRON
     Dates: start: 20210121, end: 20210325
  7. QUETIAPINA [Concomitant]
     Active Substance: QUETIAPINE
     Dates: start: 20210415
  8. VINORELBINE [Concomitant]
     Active Substance: VINORELBINE TARTRATE
     Dates: start: 20210409, end: 20210521
  9. FILGRASTIM [Concomitant]
     Active Substance: FILGRASTIM
     Dates: start: 20210313, end: 20210315
  10. PARACETAMOL [Concomitant]
     Active Substance: ACETAMINOPHEN
     Dates: start: 20201222
  11. DEXAMETHASONE. [Concomitant]
     Active Substance: DEXAMETHASONE
     Route: 048
     Dates: start: 20210413, end: 20210426
  12. REMERON [Concomitant]
     Active Substance: MIRTAZAPINE
  13. KANRENOL [Concomitant]
     Active Substance: CANRENOATE POTASSIUM
     Dates: start: 20210218
  14. NAB?PACLITAXEL [Suspect]
     Active Substance: PACLITAXEL
     Indication: TRIPLE NEGATIVE BREAST CANCER
     Dosage: DATE OF LAST DOSE OF 50 MG/M2 NAB?PACLITAXEL ADMINISTERED PRIOR TO AE: 25/MAR/2021?DATE OF LAST DOSE
     Route: 042
     Dates: start: 20201222
  15. LASIX [Concomitant]
     Active Substance: FUROSEMIDE
     Dates: start: 20210114
  16. TRITTICO [Concomitant]
     Active Substance: TRAZODONE HYDROCHLORIDE
  17. SORBICLIS [Concomitant]
     Dates: start: 20201222
  18. CHLORPHENAMINE [Concomitant]
     Active Substance: CHLORPHENIRAMINE MALEATE
     Dates: start: 20210121, end: 20210325
  19. ARIXTRA [Concomitant]
     Active Substance: FONDAPARINUX SODIUM
     Dates: start: 20210212
  20. DEXAMETHASONE. [Concomitant]
     Active Substance: DEXAMETHASONE
     Route: 048
     Dates: start: 20210325, end: 20210325

REACTIONS (1)
  - Subdural haematoma [Not Recovered/Not Resolved]

NARRATIVE: CASE EVENT DATE: 20210413
